FAERS Safety Report 7773815-X (Version None)
Quarter: 2011Q3

REPORT INFORMATION
  Report Type: 
  Country: None (occurrence: None)
  Receive Date: 20110920
  Receipt Date: 20110909
  Transmission Date: 20111222
  Serious: Yes (Other)
  Sender: FDA-Public Use
  Company Number: DSA_47627_2011

PATIENT
  Age: 73 Year
  Sex: Female

DRUGS (3)
  1. VENLAFAXINE HYDROCHLORIDE [Concomitant]
  2. BUPROPION HCL [Suspect]
     Indication: MAJOR DEPRESSION
     Dosage: (300 MG, DAILY ORAL), (150 MG QD ORAL)
     Route: 048
     Dates: start: 20110801, end: 20110801
  3. BUPROPION HCL [Suspect]
     Indication: MAJOR DEPRESSION
     Dosage: (300 MG, DAILY ORAL), (150 MG QD ORAL)
     Route: 048
     Dates: start: 20110801

REACTIONS (1)
  - MEMORY IMPAIRMENT [None]
